FAERS Safety Report 24931977 (Version 1)
Quarter: 2025Q1

REPORT INFORMATION
  Report Type: Report from Study
  Country: US (occurrence: US)
  Receive Date: 20250205
  Receipt Date: 20250205
  Transmission Date: 20250408
  Serious: No
  Sender: EXELIXIS
  Company Number: US-EXELIXIS-CABO-24079354

PATIENT
  Sex: Male

DRUGS (1)
  1. CABOMETYX [Suspect]
     Active Substance: CABOZANTINIB S-MALATE
     Indication: Renal cancer
     Dosage: 60 MG, QD
     Route: 048
     Dates: start: 202405

REACTIONS (6)
  - Rhinorrhoea [Unknown]
  - Sensitive skin [Unknown]
  - Taste disorder [Unknown]
  - Abdominal discomfort [Unknown]
  - Blister [Unknown]
  - Stomatitis [Unknown]
